FAERS Safety Report 9065792 (Version 1)
Quarter: 2013Q1

REPORT INFORMATION
  Report Type: Report from Study
  Country: US (occurrence: US)
  Receive Date: 20130131
  Receipt Date: 20130131
  Transmission Date: 20140127
  Serious: No
  Sender: FDA-Public Use
  Company Number: US-ABBOTT-12P-163-1017300-00

PATIENT
  Age: 53 Year
  Sex: Male

DRUGS (8)
  1. HUMIRA [Suspect]
     Indication: PSORIASIS
     Route: 058
     Dates: start: 20121023
  2. ZETIA [Concomitant]
     Indication: BLOOD CHOLESTEROL
  3. LOVATO [Concomitant]
     Indication: BLOOD CHOLESTEROL
  4. ASPIRIN [Concomitant]
     Indication: CARDIAC DISORDER
  5. ALLOPURINOL [Concomitant]
     Indication: NEPHROLITHIASIS
  6. VITAMINS [Concomitant]
     Indication: PRODUCT USED FOR UNKNOWN INDICATION
     Dosage: DAILY
  7. OTC SUPPLEMENTS [Concomitant]
     Indication: PRODUCT USED FOR UNKNOWN INDICATION
  8. NITROQUICK [Concomitant]
     Indication: CARDIAC DISORDER
     Dosage: HAS NEVER USED

REACTIONS (1)
  - Injection site haemorrhage [Recovered/Resolved]
